FAERS Safety Report 17025678 (Version 3)
Quarter: 2022Q1

REPORT INFORMATION
  Report Type: Spontaneous
  Country: US (occurrence: US)
  Receive Date: 20191113
  Receipt Date: 20220113
  Transmission Date: 20220424
  Serious: Yes (Hospitalization)
  Sender: FDA-Public Use
  Company Number: US-VERTEX PHARMACEUTICALS-2019-010951

PATIENT
  Sex: Female

DRUGS (2)
  1. ORKAMBI [Suspect]
     Active Substance: IVACAFTOR\LUMACAFTOR
     Indication: Cystic fibrosis
     Dosage: 100MG LUMACAFTOR/125MG IVACAFTOR, TABLETS
     Route: 048
     Dates: start: 201508
  2. ORKAMBI [Suspect]
     Active Substance: IVACAFTOR\LUMACAFTOR
     Dosage: 100MG LUMACAFTOR/125MG IVACAFTOR, TABLETS
     Route: 048
     Dates: start: 20170202, end: 20170329

REACTIONS (1)
  - Dyspnoea [Unknown]
